FAERS Safety Report 24743511 (Version 1)
Quarter: 2024Q4

REPORT INFORMATION
  Report Type: Spontaneous
  Country: CN (occurrence: CN)
  Receive Date: 20241217
  Receipt Date: 20241217
  Transmission Date: 20250115
  Serious: Yes (Other)
  Sender: BAXTER
  Company Number: None

PATIENT
  Age: 4 Year
  Sex: Male

DRUGS (1)
  1. CYCLOPHOSPHAMIDE [Suspect]
     Active Substance: CYCLOPHOSPHAMIDE
     Indication: Neoplasm malignant
     Dosage: 1 G, ONE TIME IN ONE DAY
     Route: 041
     Dates: start: 20241202, end: 20241203

REACTIONS (16)
  - Neoplasm malignant [Unknown]
  - Condition aggravated [Unknown]
  - Inappropriate antidiuretic hormone secretion [Unknown]
  - Generalised tonic-clonic seizure [Unknown]
  - Depressed level of consciousness [Unknown]
  - Muscle twitching [Recovered/Resolved]
  - Muscle rigidity [Unknown]
  - Pyrexia [Recovered/Resolved]
  - Disease recurrence [Recovered/Resolved]
  - Hyponatraemia [Recovering/Resolving]
  - Haematemesis [Recovered/Resolved]
  - Blood sodium decreased [Unknown]
  - Blood potassium decreased [Unknown]
  - Vomiting projectile [Unknown]
  - Seizure [Recovered/Resolved]
  - Vomiting [Recovered/Resolved]

NARRATIVE: CASE EVENT DATE: 20241203
